FAERS Safety Report 7867472-1 (Version None)
Quarter: 2011Q4

REPORT INFORMATION
  Report Type: 
  Country: None (occurrence: None)
  Receive Date: 20111028
  Receipt Date: 20111018
  Transmission Date: 20120403
  Serious: Yes (Hospitalization)
  Sender: FDA-Public Use
  Company Number: US-BAYER-2011-075063

PATIENT
  Age: 21 Year
  Sex: Female
  Weight: 56.689 kg

DRUGS (11)
  1. YAZ [Suspect]
     Indication: DYSMENORRHOEA
  2. YASMIN [Suspect]
     Indication: DYSMENORRHOEA
  3. DROSPIRENONE AND ETHINYL ESTRADIOL [Suspect]
     Indication: DYSMENORRHOEA
  4. ALBUTEROL [Concomitant]
     Dosage: UNK
     Route: 055
     Dates: start: 20000101
  5. VALTREX [Concomitant]
     Dosage: 500 MG, UNK
     Route: 048
     Dates: start: 20080227, end: 20080712
  6. YAZ [Suspect]
     Indication: PREMENSTRUAL SYNDROME
  7. YASMIN [Suspect]
     Indication: PREMENSTRUAL SYNDROME
  8. YASMIN [Suspect]
     Indication: ACNE
     Dosage: UNK
     Dates: start: 20050101, end: 20091201
  9. YAZ [Suspect]
     Indication: ACNE
     Dosage: UNK
     Dates: start: 20050101, end: 20091201
  10. DROSPIRENONE AND ETHINYL ESTRADIOL [Suspect]
     Indication: ACNE
     Dosage: UNK
     Dates: start: 20050101, end: 20090101
  11. DROSPIRENONE AND ETHINYL ESTRADIOL [Suspect]
     Indication: PREMENSTRUAL SYNDROME

REACTIONS (5)
  - INJURY [None]
  - GALLBLADDER DISORDER [None]
  - PAIN [None]
  - EMOTIONAL DISTRESS [None]
  - CHOLECYSTITIS CHRONIC [None]
